FAERS Safety Report 7681898-0 (Version None)
Quarter: 2011Q3

REPORT INFORMATION
  Report Type: 
  Country: None (occurrence: None)
  Receive Date: 20110815
  Receipt Date: 20110804
  Transmission Date: 20111222
  Serious: Yes (Other)
  Sender: FDA-Public Use
  Company Number: US-BIOGENIDEC-2011BI020541

PATIENT
  Sex: Female

DRUGS (1)
  1. TYSABRI [Suspect]
     Indication: MULTIPLE SCLEROSIS
     Route: 042
     Dates: start: 20071113

REACTIONS (4)
  - SMEAR CERVIX ABNORMAL [None]
  - MULTIPLE SCLEROSIS RELAPSE [None]
  - PRECANCEROUS CELLS PRESENT [None]
  - ENDOMETRIAL HYPERPLASIA [None]
